FAERS Safety Report 6142347-7 (Version None)
Quarter: 2009Q2

REPORT INFORMATION
  Report Type: 
  Country: None (occurrence: None)
  Receive Date: 20090403
  Receipt Date: 20090326
  Transmission Date: 20091009
  Serious: Yes (Other)
  Sender: FDA-Public Use
  Company Number: BR-JNJFOC-20090202227

PATIENT
  Age: 21 Year
  Sex: Male
  Weight: 66 kg

DRUGS (2)
  1. HALOPERIDOL DECANOATE [Suspect]
     Indication: DRUG LEVEL INCREASED
     Dosage: ONE VIAL (1ML)
     Route: 030
  2. HALDOL [Suspect]
     Indication: DRUG USE FOR UNKNOWN INDICATION
     Route: 065

REACTIONS (7)
  - AGITATION [None]
  - ANOREXIA [None]
  - GAZE PALSY [None]
  - HYPOKINESIA [None]
  - LEARNING DISORDER [None]
  - SALIVARY HYPERSECRETION [None]
  - TENSION [None]
